FAERS Safety Report 23817238 (Version 2)
Quarter: 2024Q2

REPORT INFORMATION
  Report Type: Spontaneous
  Country: US (occurrence: US)
  Receive Date: 20240505
  Receipt Date: 20240604
  Transmission Date: 20240716
  Serious: No
  Sender: FDA-Public Use
  Company Number: US-GSK-US2024GSK054656

PATIENT
  Sex: Female

DRUGS (1)
  1. BUPROPION [Suspect]
     Active Substance: BUPROPION
     Indication: Bipolar I disorder
     Dosage: UNK
     Dates: end: 202403

REACTIONS (1)
  - Drug ineffective for unapproved indication [Unknown]
